FAERS Safety Report 8913454 (Version 1)
Quarter: 2012Q4

REPORT INFORMATION
  Report Type: Spontaneous
  Country: BE (occurrence: None)
  Receive Date: 20121113
  Receipt Date: 20121113
  Transmission Date: 20130627
  Serious: Yes (Other)
  Sender: FDA-Public Use
  Company Number: 2012MA013061

PATIENT
  Age: 63 Year
  Sex: Female

DRUGS (5)
  1. PANTOPRAZOLE SODIUM [Suspect]
     Indication: GASTROESOPHAGEAL REFLUX
  2. OMEPRAZOLE (OMEPRAZOLE) [Suspect]
     Indication: GASTROESOPHAGEAL REFLUX
  3. LANSOPRAZOLE (LANSOPRAZOLE) [Suspect]
     Indication: GASTROESOPHAGEAL REFLUX
  4. OMEPRAZOLE [Concomitant]
  5. PIMECROLIMUS [Concomitant]

REACTIONS (5)
  - Drug hypersensitivity [None]
  - Dry mouth [None]
  - Dizziness [None]
  - Scar [None]
  - Prurigo [None]
